FAERS Safety Report 14554021 (Version 1)
Quarter: 2018Q1

REPORT INFORMATION
  Report Type: Spontaneous
  Country: US (occurrence: US)
  Receive Date: 20180216
  Receipt Date: 20180216
  Transmission Date: 20180509
  Serious: Yes (Other)
  Sender: FDA-Public Use
  Company Number: None

PATIENT
  Age: 57 Year
  Sex: Female
  Weight: 109.4 kg

DRUGS (1)
  1. AUTOLOGOUS STEM CELL TRANSPLANT ACTIVATED MARROW INFILTRATING LYMPHOCYTES [Suspect]
     Active Substance: LYMPHOCYTES

REACTIONS (1)
  - Papillary thyroid cancer [None]

NARRATIVE: CASE EVENT DATE: 20180129
